FAERS Safety Report 26211054 (Version 1)
Quarter: 2025Q4

REPORT INFORMATION
  Report Type: Spontaneous
  Country: JP (occurrence: JP)
  Receive Date: 20251230
  Receipt Date: 20251230
  Transmission Date: 20260118
  Serious: Yes (Other)
  Sender: ROCHE
  Company Number: JP-ROCHE-10000470904

PATIENT
  Age: 23 Year
  Sex: Female

DRUGS (1)
  1. XOFLUZA [Suspect]
     Active Substance: BALOXAVIR MARBOXIL
     Indication: Influenza
     Route: 048
     Dates: start: 20251209, end: 20251209

REACTIONS (2)
  - Pneumonia [Unknown]
  - Bronchitis [Unknown]

NARRATIVE: CASE EVENT DATE: 20251218
